FAERS Safety Report 9305510 (Version 1)
Quarter: 2012Q4

REPORT INFORMATION
  Report Type: Spontaneous
  Country: US (occurrence: None)
  Receive Date: 20121211
  Receipt Date: 20121211
  Transmission Date: 20130627
  Serious: No
  Sender: FDA-Public Use
  Company Number: THQ2012A06963

PATIENT
  Age: 79 Year
  Weight: 65.76 kg

DRUGS (6)
  1. PREVACID [Suspect]
     Indication: GASTRIC DISORDER
     Dosage: stopped
     Route: 048
  2. LIPITOR [Suspect]
     Indication: HIGH CHOLESTEROL
     Dosage: 10 mg, 1 in 1 D, Per oral
     Route: 048
  3. PROTONIX [Suspect]
     Indication: GASTRIC DISORDER
     Dosage: 40 mg, 2 in 1 D, Per oral
     Route: 048
  4. NEXIUM (ESOMEPRAZOLE MAGNESIUM) [Suspect]
     Indication: GASTRIC DISORDER
     Dosage: stopped
  5. GLIMEPIRIDE [Suspect]
     Indication: DIABETES MELLITUS
     Dosage: 2 mg, 1 D, Per oral
     Route: 048
     Dates: end: 201207
  6. DIOVAN (VALSARTAN) [Concomitant]

REACTIONS (12)
  - Drug ineffective [None]
  - Enteritis infectious [None]
  - Gastric ulcer [None]
  - Helicobacter infection [None]
  - Myocardial infarction [None]
  - Convulsion [None]
  - Headache [None]
  - Memory impairment [None]
  - Malaise [None]
  - Nausea [None]
  - Influenza [None]
  - Cough [None]
